FAERS Safety Report 7235417-3 (Version None)
Quarter: 2011Q1

REPORT INFORMATION
  Report Type: 
  Country: None (occurrence: None)
  Receive Date: 20110111
  Receipt Date: 20110105
  Transmission Date: 20110831
  Serious: Yes (Other)
  Sender: FDA-Public Use
  Company Number: 20119881

PATIENT
  Sex: Male

DRUGS (3)
  1. BUPIVACAINE HCL [Concomitant]
  2. DILAUDID [Concomitant]
  3. LIORESAL [Suspect]
     Indication: MUSCLE SPASTICITY
     Dosage: DAILY, INTRATHECAL
     Route: 037

REACTIONS (6)
  - DEVICE POWER SOURCE ISSUE [None]
  - IMPLANT SITE HAEMATOMA [None]
  - IMPLANT SITE SWELLING [None]
  - IMPLANT SITE PAIN [None]
  - WOUND [None]
  - DEVICE DEPLOYMENT ISSUE [None]
